FAERS Safety Report 5862946-7 (Version None)
Quarter: 2008Q3

REPORT INFORMATION
  Report Type: 
  Country: None (occurrence: None)
  Receive Date: 20080828
  Receipt Date: 20080822
  Transmission Date: 20090109
  Serious: Yes (Hospitalization)
  Sender: FDA-Public Use
  Company Number: A0744969A

PATIENT
  Age: 51 Year
  Sex: Male

DRUGS (3)
  1. AVANDIA [Suspect]
     Dosage: 8MG PER DAY
     Route: 048
     Dates: start: 20050826, end: 20070918
  2. ACTOS [Concomitant]
     Dates: start: 20030814, end: 20051118
  3. METFORMIN HCL [Concomitant]
     Dates: start: 20011004, end: 20080110

REACTIONS (2)
  - CARDIAC FAILURE CONGESTIVE [None]
  - MYOCARDIAL INFARCTION [None]
